FAERS Safety Report 9819508 (Version 1)
Quarter: 2014Q1

REPORT INFORMATION
  Report Type: Spontaneous
  Country: SE (occurrence: None)
  Receive Date: 20140113
  Receipt Date: 20140113
  Transmission Date: 20141002
  Serious: Yes (Hospitalization)
  Sender: FDA-Public Use
  Company Number: SYM-2014-14711

PATIENT
  Age: 73 Year
  Sex: Male

DRUGS (3)
  1. FLAGYL [Suspect]
     Indication: GASTROENTERITIS CLOSTRIDIAL
     Route: 042
     Dates: start: 20130410, end: 20130410
  2. PIPERACILLIN/TAZOBACTAM (PIP/TAZO) (PIPERACILLIN SODIUM, TAZOBACTAM SODIUM) [Suspect]
     Indication: GASTROENTERITIS CLOSTRIDIAL
     Route: 042
     Dates: start: 20130410, end: 20130410
  3. VANCOCIN (VANCOMYCIN HYDROCHLORIDE) (VANCOMYCIN HYDROCHLORIDE) [Concomitant]

REACTIONS (14)
  - Respiratory disorder [None]
  - Skin reaction [None]
  - Diarrhoea [None]
  - Fatigue [None]
  - Fatigue [None]
  - Pyrexia [None]
  - Somnolence [None]
  - C-reactive protein increased [None]
  - White blood cell count increased [None]
  - Blood creatinine increased [None]
  - Blood lactic acid increased [None]
  - Rash pruritic [None]
  - Rash generalised [None]
  - Enterococcus test positive [None]
